FAERS Safety Report 11824070 (Version 1)
Quarter: 2015Q4

REPORT INFORMATION
  Report Type: Spontaneous
  Country: US (occurrence: US)
  Receive Date: 20151210
  Receipt Date: 20151210
  Transmission Date: 20160305
  Serious: Yes (Other)
  Sender: FDA-Public Use
  Company Number: US-BAYER-2015-479307

PATIENT
  Sex: Male

DRUGS (1)
  1. MAGNEVIST [Suspect]
     Active Substance: GADOPENTETATE DIMEGLUMINE
     Indication: NUCLEAR MAGNETIC RESONANCE IMAGING
     Dosage: 0.1 MG/KG, 35 DOSES OVER THE COURSE OF 12 YEARS [500ML]
     Route: 042

REACTIONS (3)
  - Nuclear magnetic resonance imaging brain abnormal [None]
  - Medication residue present [None]
  - Executive dysfunction [None]
